FAERS Safety Report 4357787-6 (Version None)
Quarter: 2004Q2

REPORT INFORMATION
  Report Type: 
  Country: None (occurrence: None)
  Receive Date: 20040513
  Receipt Date: 20040506
  Transmission Date: 20050107
  Serious: Yes (Hospitalization)
  Sender: FDA-Public Use
  Company Number: IT-MERCK-0405ITA00008

PATIENT
  Age: 69 Year
  Sex: Female

DRUGS (10)
  1. ALBUTEROL [Concomitant]
     Route: 048
  2. BECLOMETHASONE DIPROPIONATE [Concomitant]
     Route: 065
  3. FORMOTEROL FUMARATE [Concomitant]
     Route: 048
  4. INSULIN HUMAN [Concomitant]
     Route: 065
  5. INSULIN, NEUTRAL [Concomitant]
     Route: 065
  6. IPRATROPIUM BROMIDE [Concomitant]
     Route: 048
  7. MEPREDNISONE [Concomitant]
     Route: 048
  8. SINGULAIR [Suspect]
     Indication: ASTHMA
     Route: 048
     Dates: start: 20040306, end: 20040403
  9. OMEPRAZOLE [Concomitant]
     Route: 048
  10. SIMVASTATIN [Concomitant]
     Route: 048

REACTIONS (3)
  - ABDOMINAL PAIN [None]
  - DERMATITIS ALLERGIC [None]
  - HEPATITIS [None]
